FAERS Safety Report 23040634 (Version 1)
Quarter: 2023Q4

REPORT INFORMATION
  Report Type: Spontaneous
  Country: CA (occurrence: CA)
  Receive Date: 20231006
  Receipt Date: 20231006
  Transmission Date: 20240110
  Serious: Yes (Other)
  Sender: FDA-Public Use
  Company Number: CA-002147023-NVSC2023CA064517

PATIENT
  Age: 23 Year
  Sex: Male
  Weight: 98 kg

DRUGS (80)
  1. ADALIMUMAB [Suspect]
     Active Substance: ADALIMUMAB
     Indication: Product used for unknown indication
     Dosage: UNK
     Route: 058
  2. HUMIRA [Suspect]
     Active Substance: ADALIMUMAB
     Indication: Ankylosing spondylitis
     Dosage: 40 MG
     Route: 058
  3. HUMIRA [Suspect]
     Active Substance: ADALIMUMAB
     Indication: Crohn^s disease
     Dosage: 40 MG
     Route: 058
  4. HUMIRA [Suspect]
     Active Substance: ADALIMUMAB
     Dosage: UNK
     Route: 058
  5. INFLECTRA [Suspect]
     Active Substance: INFLIXIMAB-DYYB
     Dosage: 1000 MG
     Route: 042
  6. INFLECTRA [Suspect]
     Active Substance: INFLIXIMAB-DYYB
     Dosage: 1000 MG
     Route: 042
  7. INFLECTRA [Suspect]
     Active Substance: INFLIXIMAB-DYYB
     Dosage: 1000 MG
     Route: 042
  8. INFLECTRA [Suspect]
     Active Substance: INFLIXIMAB-DYYB
     Dosage: 1000 MG
     Route: 042
  9. INFLECTRA [Suspect]
     Active Substance: INFLIXIMAB-DYYB
     Dosage: 1000 MG
     Route: 042
  10. INFLECTRA [Suspect]
     Active Substance: INFLIXIMAB-DYYB
     Dosage: 600 MG
     Route: 042
  11. INFLECTRA [Suspect]
     Active Substance: INFLIXIMAB-DYYB
     Indication: Crohn^s disease
     Dosage: 800 MG
     Route: 042
  12. INFLECTRA [Suspect]
     Active Substance: INFLIXIMAB-DYYB
     Dosage: 800 MG
     Route: 042
  13. INFLECTRA [Suspect]
     Active Substance: INFLIXIMAB-DYYB
     Dosage: 800 MG
     Route: 042
  14. INFLECTRA [Suspect]
     Active Substance: INFLIXIMAB-DYYB
     Dosage: 800 MG
     Route: 042
  15. INFLECTRA [Suspect]
     Active Substance: INFLIXIMAB-DYYB
     Dosage: 800 MG
     Route: 042
  16. INFLECTRA [Suspect]
     Active Substance: INFLIXIMAB-DYYB
     Dosage: 800 MG
     Route: 042
  17. INFLECTRA [Suspect]
     Active Substance: INFLIXIMAB-DYYB
     Dosage: 800 MG
     Route: 042
  18. INFLECTRA [Suspect]
     Active Substance: INFLIXIMAB-DYYB
     Dosage: 800 MG
     Route: 042
  19. INFLECTRA [Suspect]
     Active Substance: INFLIXIMAB-DYYB
     Dosage: 800 MG
     Route: 042
  20. INFLECTRA [Suspect]
     Active Substance: INFLIXIMAB-DYYB
     Dosage: 800 MG
     Route: 042
  21. INFLECTRA [Suspect]
     Active Substance: INFLIXIMAB-DYYB
     Dosage: 800 MG
     Route: 042
  22. INFLECTRA [Suspect]
     Active Substance: INFLIXIMAB-DYYB
     Dosage: 800 MG
     Route: 042
  23. INFLECTRA [Suspect]
     Active Substance: INFLIXIMAB-DYYB
     Dosage: 800 MG
     Route: 042
  24. INFLECTRA [Suspect]
     Active Substance: INFLIXIMAB-DYYB
     Dosage: 800 MG
     Route: 042
  25. INFLECTRA [Suspect]
     Active Substance: INFLIXIMAB-DYYB
     Dosage: 800 MG
     Route: 042
  26. INFLIXIMAB [Suspect]
     Active Substance: INFLIXIMAB
     Dosage: 1000 MG (1 EVERY 6 WEEKS)
     Route: 042
  27. INFLIXIMAB [Suspect]
     Active Substance: INFLIXIMAB
     Dosage: 1000 MG (1 EVERY 6 WEEKS)
     Route: 042
  28. INFLIXIMAB [Suspect]
     Active Substance: INFLIXIMAB
     Dosage: 1000 MG (1 EVERY 6 WEEKS)
     Route: 042
  29. INFLIXIMAB [Suspect]
     Active Substance: INFLIXIMAB
     Dosage: 1000 MG (1 EVERY 6 WEEKS)
     Route: 042
  30. INFLIXIMAB [Suspect]
     Active Substance: INFLIXIMAB
     Dosage: 1000 MG (1 EVERY 6 WEEKS)
     Route: 042
  31. INFLIXIMAB [Suspect]
     Active Substance: INFLIXIMAB
     Dosage: 600 MG (1 EVERY 6 WEEKS)
     Route: 042
  32. INFLIXIMAB [Suspect]
     Active Substance: INFLIXIMAB
     Indication: Crohn^s disease
     Dosage: 800 MG (1 EVERY 6 WEEKS)
     Route: 042
  33. INFLIXIMAB [Suspect]
     Active Substance: INFLIXIMAB
     Dosage: 800 MG (1 EVERY 6 WEEKS)
     Route: 042
  34. INFLIXIMAB [Suspect]
     Active Substance: INFLIXIMAB
     Dosage: 800 MG (1 EVERY 6 WEEKS)
     Route: 042
  35. INFLIXIMAB [Suspect]
     Active Substance: INFLIXIMAB
     Dosage: 800 MG (1 EVERY 6 WEEKS)
     Route: 042
  36. INFLIXIMAB [Suspect]
     Active Substance: INFLIXIMAB
     Dosage: 800 MG (1 EVERY 6 WEEKS)
     Route: 042
  37. INFLIXIMAB [Suspect]
     Active Substance: INFLIXIMAB
     Dosage: 800 MG (1 EVERY 6 WEEKS)
     Route: 042
  38. INFLIXIMAB [Suspect]
     Active Substance: INFLIXIMAB
     Dosage: 800 MG (1 EVERY 6 WEEKS)
     Route: 042
  39. INFLIXIMAB [Suspect]
     Active Substance: INFLIXIMAB
     Dosage: 800 MG (1 EVERY 6 WEEKS)
     Route: 042
  40. INFLIXIMAB [Suspect]
     Active Substance: INFLIXIMAB
     Dosage: 800 MG (1 EVERY 6 WEEKS)
     Route: 042
  41. INFLIXIMAB [Suspect]
     Active Substance: INFLIXIMAB
     Dosage: 800 MG (1 EVERY 6 WEEKS)
     Route: 042
  42. INFLIXIMAB [Suspect]
     Active Substance: INFLIXIMAB
     Dosage: 800 MG (1 EVERY 6 WEEKS)
     Route: 042
  43. INFLIXIMAB [Suspect]
     Active Substance: INFLIXIMAB
     Dosage: 800 MG (1 EVERY 6 WEEKS)
     Route: 042
  44. INFLIXIMAB [Suspect]
     Active Substance: INFLIXIMAB
     Dosage: 800 MG (1 EVERY 6 WEEKS)
     Route: 042
  45. INFLIXIMAB [Suspect]
     Active Substance: INFLIXIMAB
     Dosage: 800 MG (1 EVERY 6 WEEKS)
     Route: 042
  46. INFLIXIMAB [Suspect]
     Active Substance: INFLIXIMAB
     Dosage: 800 MG (1 EVERY 6 WEEKS)
     Route: 042
  47. INFLIXIMAB [Suspect]
     Active Substance: INFLIXIMAB
     Dosage: 800 MG (1 EVERY 6 WEEKS)
     Route: 042
  48. INFLIXIMAB [Suspect]
     Active Substance: INFLIXIMAB
     Dosage: 800 MG (1 EVERY 6 WEEKS)
     Route: 042
  49. INFLIXIMAB [Suspect]
     Active Substance: INFLIXIMAB
     Dosage: 800 MG (1 EVERY 6 WEEKS)
     Route: 042
  50. INFLIXIMAB [Suspect]
     Active Substance: INFLIXIMAB
     Dosage: 1000 MG
     Route: 042
  51. INFLIXIMAB [Suspect]
     Active Substance: INFLIXIMAB
     Dosage: 1000 MG
     Route: 042
  52. INFLIXIMAB [Suspect]
     Active Substance: INFLIXIMAB
     Dosage: 1000 MG
     Route: 042
  53. INFLIXIMAB [Suspect]
     Active Substance: INFLIXIMAB
     Dosage: 1000 MG
     Route: 042
  54. INFLIXIMAB [Suspect]
     Active Substance: INFLIXIMAB
     Dosage: 1000 MG
     Route: 042
  55. INFLIXIMAB [Suspect]
     Active Substance: INFLIXIMAB
     Dosage: 1000 MG
     Route: 042
  56. INFLIXIMAB [Suspect]
     Active Substance: INFLIXIMAB
     Dosage: 600 MG
     Route: 042
  57. INFLIXIMAB [Suspect]
     Active Substance: INFLIXIMAB
     Indication: Crohn^s disease
     Dosage: 800 MG
     Route: 042
  58. INFLIXIMAB [Suspect]
     Active Substance: INFLIXIMAB
     Dosage: 800 MG
     Route: 042
  59. INFLIXIMAB [Suspect]
     Active Substance: INFLIXIMAB
     Dosage: 800 MG
     Route: 042
  60. INFLIXIMAB [Suspect]
     Active Substance: INFLIXIMAB
     Dosage: 800 MG
     Route: 042
  61. INFLIXIMAB [Suspect]
     Active Substance: INFLIXIMAB
     Dosage: 800 MG
     Route: 042
  62. INFLIXIMAB [Suspect]
     Active Substance: INFLIXIMAB
     Dosage: 800 MG
     Route: 042
  63. INFLIXIMAB [Suspect]
     Active Substance: INFLIXIMAB
     Dosage: 800 MG
     Route: 042
  64. INFLIXIMAB [Suspect]
     Active Substance: INFLIXIMAB
     Dosage: 800 MG
     Route: 042
  65. INFLIXIMAB [Suspect]
     Active Substance: INFLIXIMAB
     Dosage: 800 MG
     Route: 042
  66. INFLIXIMAB [Suspect]
     Active Substance: INFLIXIMAB
     Dosage: 800 MG
     Route: 042
  67. INFLIXIMAB [Suspect]
     Active Substance: INFLIXIMAB
     Dosage: 800 MG
     Route: 042
  68. INFLIXIMAB [Suspect]
     Active Substance: INFLIXIMAB
     Dosage: 800 MG
     Route: 042
  69. INFLIXIMAB [Suspect]
     Active Substance: INFLIXIMAB
     Dosage: 800 MG
     Route: 042
  70. INFLIXIMAB [Suspect]
     Active Substance: INFLIXIMAB
     Dosage: 800 MG
     Route: 042
  71. INFLIXIMAB [Suspect]
     Active Substance: INFLIXIMAB
     Dosage: 800 MG
     Route: 042
  72. INFLIXIMAB [Suspect]
     Active Substance: INFLIXIMAB
     Dosage: 800 MG
     Route: 042
  73. INFLIXIMAB [Suspect]
     Active Substance: INFLIXIMAB
     Dosage: 800 MG
     Route: 042
  74. ACETAMINOPHEN [Concomitant]
     Active Substance: ACETAMINOPHEN
     Indication: Product used for unknown indication
     Dosage: UNK
     Route: 065
  75. BUDESONIDE [Concomitant]
     Active Substance: BUDESONIDE
     Indication: Product used for unknown indication
     Dosage: UNK
     Route: 065
  76. Cortiment [Concomitant]
     Indication: Product used for unknown indication
     Dosage: UNK
     Route: 065
  77. HYDROCORTISONE [Concomitant]
     Active Substance: HYDROCORTISONE
     Indication: Product used for unknown indication
     Dosage: UNK
     Route: 065
  78. HYDROCORTISONE SODIUM SUCCINATE [Concomitant]
     Active Substance: HYDROCORTISONE SODIUM SUCCINATE
     Indication: Product used for unknown indication
     Dosage: UNK
     Route: 065
  79. METHOTREXATE [Concomitant]
     Active Substance: METHOTREXATE
     Indication: Product used for unknown indication
     Dosage: UNK
     Route: 065
  80. TYLENOL [Concomitant]
     Active Substance: ACETAMINOPHEN
     Indication: Product used for unknown indication
     Dosage: UNK
     Route: 065

REACTIONS (3)
  - Arthralgia [Unknown]
  - Uveitis [Unknown]
  - Drug ineffective [Unknown]
